FAERS Safety Report 20668539 (Version 2)
Quarter: 2022Q2

REPORT INFORMATION
  Report Type: Other
  Country: JP (occurrence: JP)
  Receive Date: 20220404
  Receipt Date: 20220414
  Transmission Date: 20220721
  Serious: Yes (Other)
  Sender: FDA-Public Use
  Company Number: JP-CHUGAI-2022011439

PATIENT
  Age: 52 Year
  Sex: Female

DRUGS (1)
  1. ENTRECTINIB [Suspect]
     Active Substance: ENTRECTINIB
     Indication: Non-small cell lung cancer
     Dosage: 600 MILLIGRAM, QD
     Route: 048
     Dates: start: 20210821, end: 20220228

REACTIONS (2)
  - Metastases to liver [Unknown]
  - Disease progression [Unknown]

NARRATIVE: CASE EVENT DATE: 20220201
